FAERS Safety Report 20148670 (Version 1)
Quarter: 2021Q4

REPORT INFORMATION
  Report Type: Spontaneous
  Country: PL (occurrence: PL)
  Receive Date: 20211204
  Receipt Date: 20211204
  Transmission Date: 20220303
  Serious: Yes (Other)
  Sender: FDA-Public Use
  Company Number: PL-NOVARTISPH-NVSC2021PL270099

PATIENT
  Sex: Male

DRUGS (4)
  1. SANDOSTATIN LAR DEPOT [Suspect]
     Active Substance: OCTREOTIDE ACETATE
     Indication: Neuroendocrine tumour
     Dosage: 30 MG (1X4 WEEKS)
     Route: 065
     Dates: start: 201501, end: 201505
  2. SANDOSTATIN LAR DEPOT [Suspect]
     Active Substance: OCTREOTIDE ACETATE
  3. SANDOSTATIN LAR DEPOT [Suspect]
     Active Substance: OCTREOTIDE ACETATE
  4. EVEROLIMUS [Suspect]
     Active Substance: EVEROLIMUS
     Indication: Neuroendocrine tumour
     Dosage: 10 MG, QD
     Route: 065
     Dates: start: 20150724

REACTIONS (7)
  - Neuroendocrine tumour [Unknown]
  - Malignant neoplasm progression [Unknown]
  - Portal vein thrombosis [Unknown]
  - Hepatic lesion [Unknown]
  - Rash [Unknown]
  - Exfoliative rash [Unknown]
  - Hepatic enzyme increased [Unknown]
